FAERS Safety Report 5202988-8 (Version None)
Quarter: 2006Q4

REPORT INFORMATION
  Report Type: 
  Country: None (occurrence: None)
  Receive Date: 20061016
  Receipt Date: 20060814
  Transmission Date: 20070319
  Serious: Yes (Other)
  Sender: FDA-Public Use
  Company Number: 2006100396

PATIENT
  Sex: Male

DRUGS (2)
  1. GABAPENTIN [Suspect]
     Indication: COMPLEX REGIONAL PAIN SYNDROME
     Dosage: 1800 TO 2400 MG (DAILY), ORAL
     Route: 048
  2. GABAPENTIN [Suspect]
     Indication: PAIN
     Dosage: 1800 TO 2400 MG (DAILY), ORAL
     Route: 048

REACTIONS (2)
  - HALLUCINATION, AUDITORY [None]
  - UNEVALUABLE EVENT [None]
